FAERS Safety Report 7901297-3 (Version None)
Quarter: 2011Q4

REPORT INFORMATION
  Report Type: 
  Country: None (occurrence: None)
  Receive Date: 20111108
  Receipt Date: 20111101
  Transmission Date: 20120403
  Serious: Yes (Death, Hospitalization)
  Sender: FDA-Public Use
  Company Number: JP-SANOFI-AVENTIS-2011SA017883

PATIENT
  Age: 83 Year
  Sex: Female
  Weight: 61 kg

DRUGS (20)
  1. OXALIPLATIN [Suspect]
     Dosage: ROUTE REPORTED AS DR, FORM: INFUSION
     Route: 041
     Dates: start: 20090519, end: 20090609
  2. FLUOROURACIL [Concomitant]
     Indication: COLON CANCER
     Dosage: ROUTE BIV/DR, FORM: INFUSION
     Route: 040
     Dates: start: 20090224
  3. DEXAMETHASONE SODIUM PHOSPHATE [Concomitant]
     Indication: PREMEDICATION
     Route: 041
     Dates: start: 20090224, end: 20090609
  4. DIGOXIN [Concomitant]
     Indication: TACHYCARDIA
     Route: 041
     Dates: start: 20090710, end: 20090710
  5. MORPHINE HCL ELIXIR [Concomitant]
     Indication: CANCER PAIN
     Route: 041
     Dates: start: 20090716, end: 20090811
  6. CLINDAMYCIN [Concomitant]
     Indication: PYREXIA
     Route: 041
     Dates: start: 20090801, end: 20090811
  7. OXALIPLATIN [Suspect]
     Dosage: ROUTE REPORTED AS DR, FORM: INFUSION
     Route: 041
     Dates: start: 20090224, end: 20090310
  8. KYTRIL [Concomitant]
     Indication: PREMEDICATION
     Route: 041
     Dates: start: 20090224, end: 20090609
  9. ATORVASTATIN CALCIUM [Concomitant]
     Indication: HYPERLIPIDAEMIA
     Route: 048
     Dates: start: 20040901, end: 20090623
  10. LEVOLEUCOVORIN CALCIUM [Concomitant]
     Indication: COLON CANCER
     Dosage: ROUTE DR, FORM: INFUSION
     Route: 041
     Dates: start: 20090224, end: 20090610
  11. DOPAMINE HYDROCHLORIDE [Concomitant]
     Indication: BLOOD PRESSURE DECREASED
     Route: 041
     Dates: start: 20090801, end: 20090811
  12. AMLODIPINE BESYLATE [Concomitant]
     Indication: HYPERTENSION
     Route: 048
     Dates: start: 20040901, end: 20090623
  13. LOSARTAN POTASSIUM [Concomitant]
     Indication: HYPERTENSION
     Route: 048
     Dates: start: 20040901, end: 20090623
  14. CEFMETAZON [Concomitant]
     Indication: PYREXIA
     Route: 041
     Dates: start: 20090623, end: 20090629
  15. FOSMICIN S [Concomitant]
     Indication: PYREXIA
     Route: 041
     Dates: start: 20090714, end: 20090729
  16. FLUOROURACIL [Concomitant]
     Dosage: ROUTE BIV/DR, FORM: INFUSION
     Route: 041
     Dates: end: 20090610
  17. MUCODYNE [Concomitant]
     Indication: BRONCHITIS
     Route: 048
     Dates: start: 20040901, end: 20090623
  18. CEFTRIAXONE SODIUM [Concomitant]
     Indication: PYREXIA
     Route: 041
     Dates: start: 20090707, end: 20090713
  19. OXALIPLATIN [Suspect]
     Dosage: ROUTE REPORTED AS DR, FORM: INFUSION
     Route: 041
     Dates: start: 20090324, end: 20090421
  20. ZOSYN [Concomitant]
     Indication: PYREXIA
     Route: 041
     Dates: start: 20090730, end: 20090811

REACTIONS (5)
  - SYSTEMIC CANDIDA [None]
  - DISSEMINATED INTRAVASCULAR COAGULATION [None]
  - ANAEMIA [None]
  - RENAL FAILURE [None]
  - NEUTROPHIL COUNT DECREASED [None]
